FAERS Safety Report 5235910-9 (Version None)
Quarter: 2007Q1

REPORT INFORMATION
  Report Type: 
  Country: None (occurrence: None)
  Receive Date: 20061208
  Receipt Date: 20060425
  Transmission Date: 20070707
  Serious: Yes (Other)
  Sender: FDA-Public Use
  Company Number: 2006UW07434

PATIENT
  Age: 65 Year
  Sex: Male

DRUGS (3)
  1. CRESTOR [Suspect]
     Dosage: 5 MG PO
     Route: 048
  2. GEMFIBROZIL [Concomitant]
  3. OTHER MEDICATIONS [Concomitant]

REACTIONS (1)
  - NIGHT SWEATS [None]
